FAERS Safety Report 9889042 (Version 2)
Quarter: 2014Q1

REPORT INFORMATION
  Report Type: Spontaneous
  Country: US (occurrence: None)
  Receive Date: 20140207
  Receipt Date: 20140312
  Transmission Date: 20141002
  Serious: Yes (Hospitalization)
  Sender: FDA-Public Use
  Company Number: UTC-041395

PATIENT
  Age: 61 Year
  Sex: Female
  Weight: 75.9 kg

DRUGS (5)
  1. TYVASO [Suspect]
     Indication: PULMONARY ARTERIAL HYPERTENSION
     Route: 055
     Dates: start: 20131028
  2. TYVASO [Suspect]
     Route: 055
     Dates: start: 20131028
  3. FLOLAN [Suspect]
     Indication: PULMONARY ARTERIAL HYPERTENSION
     Dosage: 14.4 UG/KG (0.012 UG/KG, 1 IN 1 MIN), INTRAVENOUS
     Route: 042
     Dates: start: 20100206
  4. ADCIRCA (TADALAFIL) [Concomitant]
  5. TRACLEER (BOSENTAN) [Concomitant]

REACTIONS (1)
  - Pneumonia [None]
